FAERS Safety Report 20424629 (Version 1)
Quarter: 2022Q1

REPORT INFORMATION
  Report Type: Spontaneous
  Country: IT (occurrence: IT)
  Receive Date: 20220203
  Receipt Date: 20220203
  Transmission Date: 20220424
  Serious: Yes (Other)
  Sender: FDA-Public Use
  Company Number: IT-CELLTRION INC.-2022IT000875

PATIENT

DRUGS (9)
  1. INFLIXIMAB [Suspect]
     Active Substance: INFLIXIMAB
     Indication: Asthma
     Dosage: 5 MG/KG EVERY 8 WEEKS
     Route: 065
  2. INFLIXIMAB [Suspect]
     Active Substance: INFLIXIMAB
     Dosage: UNKNOWN, INITIAL INDUCTION PHASE
     Route: 065
  3. MEPOLIZUMAB [Suspect]
     Active Substance: MEPOLIZUMAB
     Indication: Asthma
     Dosage: 300 MG EVERY 4 WEEKS
     Route: 058
     Dates: start: 201705
  4. PREDNISONE [Concomitant]
     Active Substance: PREDNISONE
     Indication: Asthma
     Dosage: 8.5 MG (AT 12 MONTHS OF MEPOLIZUMAB TREATMENT AND 6 MONTHS OF BENRALIZUMAB TREATMENT)
     Route: 048
  5. PREDNISONE [Concomitant]
     Active Substance: PREDNISONE
     Dosage: 7.5 MG ONCE DAILY (AFTER 12 MONTHS OF BENRALIZUMAB TREATMENT)
     Route: 048
  6. PREDNISONE [Concomitant]
     Active Substance: PREDNISONE
     Dosage: 15 MG ONCE DAILY
     Route: 048
  7. PREDNISONE [Concomitant]
     Active Substance: PREDNISONE
     Dosage: 12.5 MG (AFTER 18 MONTHS OF MEPOLIZUMAB TREATMENT)
     Route: 048
  8. PREDNISONE [Concomitant]
     Active Substance: PREDNISONE
     Dosage: 25 MG ONCE DAILY
     Route: 048
  9. PREDNISONE [Concomitant]
     Active Substance: PREDNISONE
     Dosage: 10 MG ONCE DAILY (AFTER SIX MONTHS OF MEPOLIZUMAB TREATMENT)
     Route: 048

REACTIONS (6)
  - Asthma [Unknown]
  - Hypersensitivity vasculitis [Recovering/Resolving]
  - Hyperplasia [Unknown]
  - Eosinophilia [Recovering/Resolving]
  - Off label use [Unknown]
  - Drug ineffective for unapproved indication [Unknown]
